FAERS Safety Report 5110372-0 (Version None)
Quarter: 2006Q3

REPORT INFORMATION
  Report Type: 
  Country: None (occurrence: None)
  Receive Date: 20060921
  Receipt Date: 20060607
  Transmission Date: 20061208
  Serious: Yes (Death, Hospitalization)
  Sender: FDA-Public Use
  Company Number: US-SANOFI-SYNTHELABO-F03200600115

PATIENT
  Age: 824 Month
  Sex: Female
  Weight: 86 kg

DRUGS (3)
  1. OXALIPLATIN [Suspect]
     Indication: PANCREATIC CARCINOMA METASTATIC
     Dosage: 190 MG (100 MG/M2) ON DAYS 1 AND 15
     Route: 042
     Dates: start: 20051202, end: 20051202
  2. GEMCITABINE [Suspect]
     Indication: PANCREATIC CARCINOMA METASTATIC
     Dosage: 1920 MG (1000 MG/M2) ON DAYS 1 AND 15
     Route: 042
     Dates: start: 20051201, end: 20051201
  3. AVASTIN [Suspect]
     Indication: PANCREATIC CARCINOMA METASTATIC
     Dosage: 840 MG (10 MG/KG) ON DAYS 1 AND 15
     Route: 042
     Dates: start: 20051201, end: 20051201

REACTIONS (8)
  - ANOREXIA [None]
  - BLOOD CALCIUM DECREASED [None]
  - BLOOD POTASSIUM DECREASED [None]
  - BLOOD SODIUM DECREASED [None]
  - DEATH [None]
  - DISEASE PROGRESSION [None]
  - FAILURE TO THRIVE [None]
  - STOMATITIS [None]
